FAERS Safety Report 7971917-6 (Version None)
Quarter: 2011Q4

REPORT INFORMATION
  Report Type: 
  Country: None (occurrence: None)
  Receive Date: 20111212
  Receipt Date: 20111205
  Transmission Date: 20120403
  Serious: Yes (Other)
  Sender: FDA-Public Use
  Company Number: PHEH2011US011111

PATIENT
  Sex: Female

DRUGS (3)
  1. GILENYA [Suspect]
     Indication: MULTIPLE SCLEROSIS
     Dosage: 0.5 MG, QD
     Route: 048
     Dates: start: 20110901
  2. NAPROXEN [Concomitant]
     Dosage: 500 MG, DAILY
  3. AMANTADINE HCL [Concomitant]
     Dosage: 100 MG, BID

REACTIONS (2)
  - BLINDNESS [None]
  - CORNEAL DISORDER [None]
